FAERS Safety Report 9191400 (Version 1)
Quarter: 2013Q1

REPORT INFORMATION
  Report Type: Spontaneous
  Country: US (occurrence: US)
  Receive Date: 20130326
  Receipt Date: 20130326
  Transmission Date: 20140127
  Serious: Yes (Other)
  Sender: FDA-Public Use
  Company Number: US-US-EMD SERONO, INC.-7062551

PATIENT
  Age: 62 None
  Sex: Female

DRUGS (1)
  1. REBIF [Suspect]
     Indication: PRODUCT USED FOR UNKNOWN INDICATION
     Dates: start: 20110526

REACTIONS (6)
  - Carcinoid tumour of the small bowel [Unknown]
  - Intestinal strangulation [Not Recovered/Not Resolved]
  - Goitre [Unknown]
  - Nodule [Unknown]
  - Gingival abscess [Unknown]
  - Hypersensitivity [Unknown]
